FAERS Safety Report 15268210 (Version 1)
Quarter: 2018Q3

REPORT INFORMATION
  Report Type: Spontaneous
  Country: US (occurrence: US)
  Receive Date: 20180725
  Receipt Date: 20180725
  Transmission Date: 20181010
  Serious: Yes (Hospitalization)
  Sender: FDA-Public Use
  Company Number: None

PATIENT
  Age: 56 Year
  Sex: Female

DRUGS (1)
  1. GAMUNEX?C [Suspect]
     Active Substance: HUMAN IMMUNOGLOBULIN G
     Indication: MYASTHENIA GRAVIS
     Route: 042
     Dates: start: 20180718, end: 20180719

REACTIONS (7)
  - Fatigue [None]
  - Vision blurred [None]
  - Nasal congestion [None]
  - Seizure [None]
  - Neck pain [None]
  - Cough [None]
  - Dyspnoea [None]

NARRATIVE: CASE EVENT DATE: 20180718
